FAERS Safety Report 7120561-1 (Version None)
Quarter: 2010Q4

REPORT INFORMATION
  Report Type: 
  Country: None (occurrence: None)
  Receive Date: 20101122
  Receipt Date: 20101122
  Transmission Date: 20110411
  Serious: Yes (Hospitalization, Disabling)
  Sender: FDA-Public Use
  Company Number: None

PATIENT
  Age: 67 Year
  Sex: Female
  Weight: 65.7716 kg

DRUGS (1)
  1. ZOMETA [Suspect]
     Indication: BREAST CANCER METASTATIC
     Dosage: DRIPS AT ONCOLOGY OFFICE EVERY 2/3 MONTHS IV DRIP
     Route: 041
     Dates: start: 20060101, end: 20100501

REACTIONS (2)
  - FEMUR FRACTURE [None]
  - PATHOLOGICAL FRACTURE [None]
